FAERS Safety Report 8824264 (Version 3)
Quarter: 2012Q4

REPORT INFORMATION
  Report Type: 
  Country: US (occurrence: US)
  Receive Date: 20121004
  Receipt Date: 20121122
  Transmission Date: 20130627
  Serious: Yes (Hospitalization)
  Sender: FDA-Public Use
  Company Number: US-BIOGENIDEC-2012BI023838

PATIENT
  Age: 60 Year
  Sex: Male

DRUGS (1)
  1. AVONEX [Suspect]
     Indication: MULTIPLE SCLEROSIS
     Route: 030
     Dates: start: 19990601, end: 20120525

REACTIONS (6)
  - Arterial occlusive disease [Not Recovered/Not Resolved]
  - Cardiac disorder [Unknown]
  - Cardiac failure congestive [Not Recovered/Not Resolved]
  - Motor dysfunction [Unknown]
  - Underdose [Recovered/Resolved]
  - Influenza like illness [Unknown]
